FAERS Safety Report 24716450 (Version 1)
Quarter: 2024Q4

REPORT INFORMATION
  Report Type: Spontaneous
  Country: US (occurrence: US)
  Receive Date: 20241210
  Receipt Date: 20241210
  Transmission Date: 20250114
  Serious: Yes (Hospitalization, Other)
  Sender: APOTEX
  Company Number: US-APOTEX-2024AP019487

PATIENT

DRUGS (2)
  1. GEMCITABINE [Suspect]
     Active Substance: GEMCITABINE
     Indication: Bladder transitional cell carcinoma
     Dosage: 1 G GEMCITABINE IN 50 ML OF STERILE WATER (OR NORMAL SALINE) FOR 90 MINUTES, Q.WK.
     Route: 043
  2. DOCETAXEL [Suspect]
     Active Substance: DOCETAXEL
     Indication: Bladder transitional cell carcinoma
     Dosage: 37.5 MG DOCETAXEL DISSOLVED IN 50 ML OF NORMAL SALINE FOR 90 TO 120 MINUTES, Q.WK.
     Route: 043

REACTIONS (1)
  - Hypoxia [Unknown]
